FAERS Safety Report 7288095-1 (Version None)
Quarter: 2011Q1

REPORT INFORMATION
  Report Type: 
  Country: None (occurrence: None)
  Receive Date: 20110207
  Receipt Date: 20110207
  Transmission Date: 20110831
  Serious: No
  Sender: FDA-Public Use
  Company Number: None

PATIENT
  Age: 20 Year
  Sex: Female
  Weight: 62.5964 kg

DRUGS (1)
  1. PRISTIQ [Suspect]
     Indication: DEPRESSION
     Dosage: 50 MG 1XDAILY PO
     Route: 048
     Dates: start: 20110125, end: 20110203

REACTIONS (2)
  - LOSS OF EMPLOYMENT [None]
  - DRUG SCREEN POSITIVE [None]
